FAERS Safety Report 15516208 (Version 1)
Quarter: 2018Q4

REPORT INFORMATION
  Report Type: Spontaneous
  Country: DE (occurrence: DE)
  Receive Date: 20181017
  Receipt Date: 20181017
  Transmission Date: 20190205
  Serious: Yes (Other)
  Sender: FDA-Public Use
  Company Number: DE-ROCHE-2199702

PATIENT
  Age: 55 Year
  Sex: Female

DRUGS (3)
  1. ERGENYL [Concomitant]
     Active Substance: VALPROIC ACID
  2. RIVOTRIL [Suspect]
     Active Substance: CLONAZEPAM
     Indication: EPILEPSY
     Route: 065
  3. CLONAZEPAM. [Concomitant]
     Active Substance: CLONAZEPAM

REACTIONS (4)
  - Tremor [Unknown]
  - Epilepsy [Unknown]
  - Disorientation [Unknown]
  - Muscle spasms [Unknown]
